FAERS Safety Report 5595329-8 (Version None)
Quarter: 2008Q1

REPORT INFORMATION
  Report Type: 
  Country: None (occurrence: None)
  Receive Date: 20080117
  Receipt Date: 20080109
  Transmission Date: 20080703
  Serious: Yes (Death)
  Sender: FDA-Public Use
  Company Number: US-PFIZER INC-2008003235

PATIENT
  Age: 51 Year
  Sex: Male

DRUGS (4)
  1. MINOXIDIL [Suspect]
  2. AMITRIPTYLINE HCL [Suspect]
  3. METOPROLOL TARTRATE [Suspect]
  4. CLONIDINE [Suspect]

REACTIONS (1)
  - DEATH [None]
